FAERS Safety Report 6740760-8 (Version None)
Quarter: 2010Q2

REPORT INFORMATION
  Report Type: 
  Country: None (occurrence: None)
  Receive Date: 20100524
  Receipt Date: 20100519
  Transmission Date: 20101027
  Serious: Yes (Death)
  Sender: FDA-Public Use
  Company Number: 2010SP027943

PATIENT
  Age: 51 Year
  Sex: Female

DRUGS (4)
  1. SAPHRIS [Suspect]
     Indication: PARANOIA
     Dosage: PO
     Route: 048
     Dates: start: 20100401
  2. SAPHRIS [Suspect]
     Indication: SCHIZOPHRENIFORM DISORDER
     Dosage: PO
     Route: 048
     Dates: start: 20100401
  3. DEPAKOTE [Concomitant]
  4. WELLBUTRIN [Concomitant]

REACTIONS (1)
  - POST PROCEDURAL COMPLICATION [None]
